FAERS Safety Report 25351902 (Version 2)
Quarter: 2025Q2

REPORT INFORMATION
  Report Type: Spontaneous
  Country: US (occurrence: None)
  Receive Date: 20250523
  Receipt Date: 20250603
  Transmission Date: 20250717
  Serious: Yes (Other)
  Sender: INCYTE
  Company Number: US-002147023-NVSC2025US082430

PATIENT
  Age: 67 Year

DRUGS (16)
  1. JAKAFI [Suspect]
     Active Substance: RUXOLITINIB
     Indication: Cytokine release syndrome
     Dosage: 10 MG, BID (ON DAY +21)
     Route: 065
  2. SILTUXIMAB [Suspect]
     Active Substance: SILTUXIMAB
     Indication: Cytokine release syndrome
     Route: 065
  3. METHYLPREDNISOLONE [Suspect]
     Active Substance: METHYLPREDNISOLONE
     Indication: Cytokine release syndrome
     Dosage: 1 G, BID (ON DAY +21)
     Route: 065
  4. ANAKINRA [Suspect]
     Active Substance: ANAKINRA
     Indication: Cytokine release syndrome
     Dosage: 200 MG, Q6H (ON DAY +21)
     Route: 065
  5. TOCILIZUMAB [Concomitant]
     Active Substance: TOCILIZUMAB
     Indication: Cytokine release syndrome
     Route: 065
  6. DEXAMETHASONE [Concomitant]
     Active Substance: DEXAMETHASONE
     Indication: Cytokine release syndrome
     Route: 065
  7. DEXAMETHASONE [Concomitant]
     Active Substance: DEXAMETHASONE
     Route: 065
  8. RIMIDUCID [Concomitant]
     Active Substance: RIMIDUCID
     Indication: Hormone-refractory prostate cancer
     Route: 050
  9. RIMIDUCID [Concomitant]
     Active Substance: RIMIDUCID
     Indication: Prostate cancer metastatic
  10. FLUDARABINE [Concomitant]
     Active Substance: FLUDARABINE PHOSPHATE
     Indication: Hormone-refractory prostate cancer
     Route: 065
  11. FLUDARABINE [Concomitant]
     Active Substance: FLUDARABINE PHOSPHATE
     Indication: Prostate cancer metastatic
  12. CYCLOPHOSPHAMIDE [Concomitant]
     Active Substance: CYCLOPHOSPHAMIDE
     Indication: Hormone-refractory prostate cancer
     Route: 065
  13. CYCLOPHOSPHAMIDE [Concomitant]
     Active Substance: CYCLOPHOSPHAMIDE
     Indication: Prostate cancer metastatic
  14. NOREPINEPHRINE [Concomitant]
     Active Substance: NOREPINEPHRINE
     Indication: Cytokine release syndrome
     Route: 065
  15. VASOPRESSIN [Concomitant]
     Active Substance: VASOPRESSIN
     Indication: Cytokine release syndrome
     Route: 065
  16. PHENYLEPHRINE [Concomitant]
     Active Substance: PHENYLEPHRINE
     Indication: Cytokine release syndrome
     Route: 065

REACTIONS (3)
  - Condition aggravated [Unknown]
  - Cytokine release syndrome [Unknown]
  - Off label use [Unknown]
